FAERS Safety Report 14954489 (Version 3)
Quarter: 2018Q2

REPORT INFORMATION
  Report Type: Spontaneous
  Country: CH (occurrence: CH)
  Receive Date: 20180530
  Receipt Date: 20180630
  Transmission Date: 20180711
  Serious: Yes (Hospitalization)
  Sender: FDA-Public Use
  Company Number: CH-B.I. PHARMACEUTICALS,INC./RIDGEFIELD-2018-BI-028450

PATIENT
  Age: 81 Year
  Sex: Male
  Weight: 77 kg

DRUGS (1)
  1. TAMSULOSINA [Suspect]
     Active Substance: TAMSULOSIN HYDROCHLORIDE
     Indication: MICTURITION DISORDER
     Route: 065

REACTIONS (5)
  - Constipation [Recovered/Resolved]
  - Prostatic adenoma [Recovered/Resolved]
  - Prostatic disorder [Recovered/Resolved]
  - Urinary retention [Unknown]
  - Bladder diverticulum [Recovered/Resolved]
